FAERS Safety Report 20200558 (Version 1)
Quarter: 2021Q4

REPORT INFORMATION
  Report Type: Spontaneous
  Country: US (occurrence: None)
  Receive Date: 20211216
  Receipt Date: 20211216
  Transmission Date: 20220303
  Serious: No
  Sender: FDA-Public Use
  Company Number: None

PATIENT

DRUGS (3)
  1. VENOFER [Suspect]
     Active Substance: IRON SUCROSE
  2. INFED [Suspect]
     Active Substance: IRON DEXTRAN
  3. SUCROFERRIC OXYHYDROXIDE [Suspect]
     Active Substance: SUCROFERRIC OXYHYDROXIDE

REACTIONS (1)
  - Circumstance or information capable of leading to medication error [None]
